FAERS Safety Report 12847745 (Version 1)
Quarter: 2016Q4

REPORT INFORMATION
  Report Type: Spontaneous
  Country: US (occurrence: US)
  Receive Date: 20161014
  Receipt Date: 20161014
  Transmission Date: 20170207
  Serious: No
  Sender: FDA-Public Use
  Company Number: US-JNJFOC-20160917770

PATIENT
  Age: 14 Month
  Sex: Female
  Weight: 11.79 kg

DRUGS (2)
  1. INFANTS TYLENOL [Suspect]
     Active Substance: ACETAMINOPHEN
     Indication: MALAISE
     Dosage: ONCE
     Route: 048
     Dates: start: 20160915
  2. INFANTS TYLENOL [Suspect]
     Active Substance: ACETAMINOPHEN
     Indication: PAIN
     Dosage: ONCE
     Route: 048
     Dates: start: 20160915

REACTIONS (1)
  - Intentional underdose [Unknown]

NARRATIVE: CASE EVENT DATE: 20160915
